FAERS Safety Report 25649040 (Version 1)
Quarter: 2025Q3

REPORT INFORMATION
  Report Type: Other
  Country: TR (occurrence: TR)
  Receive Date: 20250806
  Receipt Date: 20250806
  Transmission Date: 20251020
  Serious: Yes (Other)
  Sender: APTAPHARMA INC.
  Company Number: TR-AptaPharma Inc.-2181906

PATIENT
  Age: 16 Year

DRUGS (4)
  1. IBUPROFEN [Suspect]
     Active Substance: IBUPROFEN
     Indication: Product used for unknown indication
  2. DICLOFENAC SODIUM [Concomitant]
     Active Substance: DICLOFENAC SODIUM
  3. ACETAMINOPHEN [Concomitant]
     Active Substance: ACETAMINOPHEN
  4. KETOPROFEN [Concomitant]
     Active Substance: KETOPROFEN

REACTIONS (1)
  - Angioedema [Unknown]
